FAERS Safety Report 16936919 (Version 1)
Quarter: 2019Q4

REPORT INFORMATION
  Report Type: Spontaneous
  Country: GB (occurrence: GB)
  Receive Date: 20191018
  Receipt Date: 20191018
  Transmission Date: 20200122
  Serious: Yes (Other)
  Sender: FDA-Public Use
  Company Number: NVSC2019GB001926

PATIENT
  Age: 54 Year
  Sex: Female

DRUGS (1)
  1. GILENYA [Suspect]
     Active Substance: FINGOLIMOD HYDROCHLORIDE
     Indication: RELAPSING-REMITTING MULTIPLE SCLEROSIS
     Route: 065

REACTIONS (6)
  - Rebound effect [Unknown]
  - Basal cell carcinoma [Unknown]
  - Secondary progressive multiple sclerosis [Recovering/Resolving]
  - Cognitive disorder [Recovering/Resolving]
  - Cranial nerve disorder [Recovering/Resolving]
  - Nervous system disorder [Recovering/Resolving]
